FAERS Safety Report 10910319 (Version 2)
Quarter: 2016Q1

REPORT INFORMATION
  Report Type: Spontaneous
  Country: US (occurrence: US)
  Receive Date: 20150312
  Receipt Date: 20160322
  Transmission Date: 20160525
  Serious: No
  Sender: FDA-Public Use
  Company Number: US-SA-2014SA122218

PATIENT
  Age: 69 Year
  Sex: Female

DRUGS (2)
  1. NASACORT ALLERGY 24HR [Suspect]
     Active Substance: TRIAMCINOLONE ACETONIDE
     Indication: HOUSE DUST ALLERGY
     Dosage: 1 WEEK AGO, 2 SPRAYS EACH NOSTRIL
     Route: 065
  2. NASACORT ALLERGY 24HR [Suspect]
     Active Substance: TRIAMCINOLONE ACETONIDE
     Indication: HOUSE DUST ALLERGY
     Dosage: 1 WEEK AGO, 2 SPRAYS EACH NOSTRIL
     Route: 065

REACTIONS (4)
  - Ocular hyperaemia [Unknown]
  - Underdose [Unknown]
  - Rhinorrhoea [Not Recovered/Not Resolved]
  - Hypersensitivity [Not Recovered/Not Resolved]
